FAERS Safety Report 11784602 (Version 2)
Quarter: 2015Q4

REPORT INFORMATION
  Report Type: Spontaneous
  Country: LT (occurrence: LT)
  Receive Date: 20151130
  Receipt Date: 20151209
  Transmission Date: 20160305
  Serious: Yes (Hospitalization)
  Sender: FDA-Public Use
  Company Number: LT-ROCHE-1669129

PATIENT
  Age: 77 Year
  Sex: Female
  Weight: 65 kg

DRUGS (2)
  1. ZELBORAF [Suspect]
     Active Substance: VEMURAFENIB
     Indication: MALIGNANT MELANOMA
     Dosage: 2 TAB OF 240 MG TWICE PER DAY
     Route: 048
     Dates: start: 20151113, end: 20151121
  2. ZELBORAF [Suspect]
     Active Substance: VEMURAFENIB
     Dosage: 2 TAB OF 240 MG TWICE PER DAY
     Route: 048

REACTIONS (6)
  - Paraesthesia [Recovered/Resolved]
  - Blood pressure fluctuation [Not Recovered/Not Resolved]
  - Blister [Recovering/Resolving]
  - Rash [Recovered/Resolved]
  - Keratoacanthoma [Not Recovered/Not Resolved]
  - Pruritus [Recovered/Resolved]

NARRATIVE: CASE EVENT DATE: 20151119
